FAERS Safety Report 10723001 (Version 2)
Quarter: 2015Q1

REPORT INFORMATION
  Report Type: Spontaneous
  Country: SE (occurrence: None)
  Receive Date: 20150114
  Receipt Date: 20150123
  Transmission Date: 20150721
  Serious: Yes (Other)
  Sender: FDA-Public Use
  Company Number: 201501IM008412

PATIENT
  Age: 79 Year
  Sex: Male

DRUGS (2)
  1. ESBRIET [Suspect]
     Active Substance: PIRFENIDONE
     Indication: PRODUCT USED FOR UNKNOWN INDICATION
     Route: 048
  2. LUCENTIS [Concomitant]
     Active Substance: RANIBIZUMAB

REACTIONS (4)
  - Headache [None]
  - Diarrhoea [None]
  - Depression [None]
  - Retinal artery embolism [None]

NARRATIVE: CASE EVENT DATE: 20141229
